FAERS Safety Report 8397440-5 (Version None)
Quarter: 2012Q2

REPORT INFORMATION
  Report Type: 
  Country: None (occurrence: None)
  Receive Date: 20120529
  Receipt Date: 20120529
  Transmission Date: 20120825
  Serious: Yes (Disabling)
  Sender: FDA-Public Use
  Company Number: None

PATIENT
  Age: 76 Year
  Sex: Female
  Weight: 61.6892 kg

DRUGS (1)
  1. LYRICA [Suspect]
     Indication: NEUROPATHY PERIPHERAL
     Dosage: 1 CAPSULE 2X A DAY PO
     Route: 048
     Dates: start: 20120416, end: 20120424

REACTIONS (5)
  - HYPOAESTHESIA [None]
  - MALAISE [None]
  - MUSCULAR WEAKNESS [None]
  - BACK PAIN [None]
  - NECK PAIN [None]
